FAERS Safety Report 17749867 (Version 1)
Quarter: 2020Q2

REPORT INFORMATION
  Report Type: Spontaneous
  Country: FR (occurrence: FR)
  Receive Date: 20200506
  Receipt Date: 20200506
  Transmission Date: 20200714
  Serious: Yes (Life-Threatening)
  Sender: FDA-Public Use
  Company Number: FR-TEVA-2020-FR-1230144

PATIENT
  Age: 61 Year
  Sex: Male
  Weight: 105 kg

DRUGS (4)
  1. RITONAVIR. [Interacting]
     Active Substance: RITONAVIR
     Indication: CORONAVIRUS INFECTION
     Dosage: CF COMMENTS
     Route: 050
     Dates: start: 20200326, end: 20200328
  2. CIPROFLOXACINE [Interacting]
     Active Substance: CIPROFLOXACIN
     Indication: PNEUMONIA
     Dosage: 800 MG
     Route: 041
     Dates: start: 20200324, end: 20200326
  3. AMIODARONE [Suspect]
     Active Substance: AMIODARONE
     Indication: ATRIAL FIBRILLATION
     Dosage: CF COMMENTS
     Route: 041
     Dates: start: 20200326
  4. LOPINAVIR [Interacting]
     Active Substance: LOPINAVIR
     Indication: CORONAVIRUS INFECTION
     Dosage: CF COMMENTS
     Route: 050
     Dates: start: 20200326, end: 20200328

REACTIONS (4)
  - Torsade de pointes [Recovered/Resolved]
  - Electrocardiogram QT prolonged [Not Recovered/Not Resolved]
  - Ventricular tachycardia [Recovered/Resolved]
  - Drug interaction [Unknown]

NARRATIVE: CASE EVENT DATE: 20200328
